FAERS Safety Report 17283678 (Version 2)
Quarter: 2020Q1

REPORT INFORMATION
  Report Type: Spontaneous
  Country: IT (occurrence: IT)
  Receive Date: 20200117
  Receipt Date: 20200124
  Transmission Date: 20200409
  Serious: Yes (Other)
  Sender: FDA-Public Use
  Company Number: IT-BAUSCH-BL-2020-000922

PATIENT
  Age: 57 Year
  Sex: Female

DRUGS (6)
  1. TOBRAMYCIN AND DEXAMETHASONE [Suspect]
     Active Substance: DEXAMETHASONE\TOBRAMYCIN
     Indication: UVEITIC GLAUCOMA
     Route: 065
  2. MITOMYCIN. [Suspect]
     Active Substance: MITOMYCIN
     Indication: CATARACT CORTICAL
  3. TOBRAMYCIN AND DEXAMETHASONE [Suspect]
     Active Substance: DEXAMETHASONE\TOBRAMYCIN
     Indication: CATARACT CORTICAL
     Route: 065
  4. MITOMYCIN. [Suspect]
     Active Substance: MITOMYCIN
     Indication: MYOPIA
     Route: 031
  5. MITOMYCIN. [Suspect]
     Active Substance: MITOMYCIN
     Indication: UVEITIC GLAUCOMA
  6. TOBRAMYCIN AND DEXAMETHASONE [Suspect]
     Active Substance: DEXAMETHASONE\TOBRAMYCIN
     Indication: MYOPIA

REACTIONS (4)
  - Uveitic glaucoma [Unknown]
  - Fibrosis [Unknown]
  - Product use in unapproved indication [Recovered/Resolved]
  - Intentional product use issue [Recovered/Resolved]
